FAERS Safety Report 9531267 (Version 1)
Quarter: 2013Q3

REPORT INFORMATION
  Report Type: Spontaneous
  Country: CN (occurrence: None)
  Receive Date: 20130916
  Receipt Date: 20130916
  Transmission Date: 20140515
  Serious: Yes (Death)
  Sender: FDA-Public Use
  Company Number: 2013P1019134

PATIENT
  Sex: Male

DRUGS (2)
  1. AMIODARONE [Suspect]
     Indication: CARDIAC FAILURE ACUTE
     Route: 042
  2. AMIODARONE [Suspect]
     Indication: ATRIAL FIBRILLATION
     Route: 042

REACTIONS (3)
  - Acute hepatic failure [None]
  - Multi-organ failure [None]
  - Hepatotoxicity [None]
